FAERS Safety Report 7581239-3 (Version None)
Quarter: 2011Q2

REPORT INFORMATION
  Report Type: 
  Country: None (occurrence: None)
  Receive Date: 20110629
  Receipt Date: 20110607
  Transmission Date: 20111010
  Serious: Yes (Hospitalization)
  Sender: FDA-Public Use
  Company Number: GB-PFIZER INC-2011133385

PATIENT
  Age: 50 Year
  Sex: Female
  Weight: 137 kg

DRUGS (3)
  1. AMLODIPINE BESYLATE [Suspect]
     Dosage: 160 MG, UNK
  2. AMLODIPINE BESYLATE [Suspect]
     Dosage: 770 MG, UNK
  3. LOSARTAN POTASSIUM [Suspect]
     Dosage: 16640 MG, UNK

REACTIONS (7)
  - OVERDOSE [None]
  - METABOLIC ACIDOSIS [None]
  - ANURIA [None]
  - RENAL IMPAIRMENT [None]
  - HYPOTENSION [None]
  - PULMONARY OEDEMA [None]
  - HYPERKALAEMIA [None]
